FAERS Safety Report 8756825 (Version 4)
Quarter: 2013Q2

REPORT INFORMATION
  Report Type: Spontaneous
  Country: US (occurrence: US)
  Receive Date: 20120828
  Receipt Date: 20130424
  Transmission Date: 20140414
  Serious: Yes (Hospitalization)
  Sender: FDA-Public Use
  Company Number: US-B.I. PHARMACEUTICALS,INC./RIDGEFIELD-2012-BP-20133BP

PATIENT
  Age: 81 Year
  Sex: Male
  Weight: 104.33 kg

DRUGS (9)
  1. PRADAXA [Suspect]
     Indication: ANTICOAGULANT THERAPY
     Dosage: 300 MG
     Route: 048
     Dates: start: 20111007, end: 20111022
  2. PRADAXA [Suspect]
     Indication: ATRIAL FIBRILLATION
  3. KLOR-CON [Concomitant]
     Dosage: 10 MEQ
     Route: 048
  4. LASIX [Concomitant]
     Dosage: 80 MG
     Route: 048
  5. CELEBREX [Concomitant]
     Dosage: 200 MG
     Route: 048
  6. LISINOPRIL [Concomitant]
     Dosage: 20 MG
     Route: 048
  7. LORTAB [Concomitant]
     Indication: PAIN
     Dosage: 15 MG
     Route: 048
  8. LOPRESSOR [Concomitant]
     Dosage: 50 MG
     Route: 048
  9. ALLOPURINOL [Concomitant]
     Dosage: 200 MG
     Route: 048

REACTIONS (3)
  - Upper gastrointestinal haemorrhage [Unknown]
  - Anaemia [Unknown]
  - Rectal haemorrhage [Unknown]
